FAERS Safety Report 9605855 (Version 1)
Quarter: 2013Q4

REPORT INFORMATION
  Report Type: Spontaneous
  Country: US (occurrence: US)
  Receive Date: 20131008
  Receipt Date: 20131008
  Transmission Date: 20140711
  Serious: No
  Sender: FDA-Public Use
  Company Number: US-AMGEN-USASP2013046083

PATIENT
  Sex: Female

DRUGS (3)
  1. XGEVA [Suspect]
     Indication: NEOPLASM
     Dosage: 120 MG, Q4WK
  2. XGEVA [Suspect]
     Indication: BONE DISORDER
  3. PACLITAXEL [Concomitant]

REACTIONS (1)
  - Muscle twitching [Unknown]
